APPROVED DRUG PRODUCT: PYRAZINAMIDE
Active Ingredient: PYRAZINAMIDE
Strength: 500MG
Dosage Form/Route: TABLET;ORAL
Application: A081319 | Product #001 | TE Code: AB
Applicant: HIKMA PHARMACEUTICALS USA INC
Approved: Jun 30, 1992 | RLD: No | RS: Yes | Type: RX